FAERS Safety Report 24715991 (Version 1)
Quarter: 2024Q4

REPORT INFORMATION
  Report Type: Report from Study
  Country: MX (occurrence: MX)
  Receive Date: 20241210
  Receipt Date: 20241210
  Transmission Date: 20250115
  Serious: Yes (Hospitalization)
  Sender: ROCHE
  Company Number: MX-ROCHE-10000148305

PATIENT
  Age: 36 Year
  Sex: Female
  Weight: 71 kg

DRUGS (1)
  1. OCREVUS [Suspect]
     Active Substance: OCRELIZUMAB
     Indication: Multiple sclerosis
     Route: 042
     Dates: start: 20181214

REACTIONS (5)
  - Adverse drug reaction [Recovered/Resolved with Sequelae]
  - Multiple sclerosis [Recovered/Resolved with Sequelae]
  - Migraine [Not Recovered/Not Resolved]
  - Dizziness [Not Recovered/Not Resolved]
  - Photophobia [Not Recovered/Not Resolved]

NARRATIVE: CASE EVENT DATE: 20240617
